FAERS Safety Report 7875340-4 (Version None)
Quarter: 2011Q4

REPORT INFORMATION
  Report Type: 
  Country: None (occurrence: None)
  Receive Date: 20111031
  Receipt Date: 20111018
  Transmission Date: 20120403
  Serious: Yes (Hospitalization)
  Sender: FDA-Public Use
  Company Number: US-GLAXOSMITHKLINE-A0915707A

PATIENT
  Age: 69 Year
  Sex: Male
  Weight: 124.1 kg

DRUGS (1)
  1. AVANDIA [Suspect]
     Indication: DIABETES MELLITUS
     Dosage: 4MG PER DAY
     Route: 048
     Dates: start: 20030601, end: 20090801

REACTIONS (7)
  - DIASTOLIC DYSFUNCTION [None]
  - PAIN [None]
  - CORONARY ARTERY BYPASS [None]
  - ARTERIOSCLEROSIS [None]
  - HYPERLIPIDAEMIA [None]
  - ISCHAEMIA [None]
  - HYPERTENSION [None]
